FAERS Safety Report 23734175 (Version 1)
Quarter: 2024Q2

REPORT INFORMATION
  Report Type: Spontaneous
  Country: CN (occurrence: CN)
  Receive Date: 20240412
  Receipt Date: 20240412
  Transmission Date: 20240716
  Serious: Yes (Hospitalization, Other)
  Sender: FDA-Public Use
  Company Number: CN-ABBVIE-5713261

PATIENT
  Age: 45 Year
  Sex: Female
  Weight: 43 kg

DRUGS (3)
  1. VENETOCLAX [Suspect]
     Active Substance: VENETOCLAX
     Indication: Acute myeloid leukaemia
     Dosage: 100 MG ORAL EVERY DAY,  D1-14
     Route: 048
     Dates: start: 20240330, end: 20240408
  2. CYTARABINE [Suspect]
     Active Substance: CYTARABINE
     Indication: Acute myeloid leukaemia
     Dosage: 0.02 GRAM?CYTARABINE FOR INJECTION?CYTARABINE SUBCUTANEOUS INJECTION 0.01G EVERY 12 HOUR D1-7
     Route: 058
     Dates: start: 20240330, end: 20240403
  3. AZACITIDINE [Suspect]
     Active Substance: AZACITIDINE
     Indication: Acute myeloid leukaemia
     Dosage: 50 MILLIGRAM?AZACITIDINE FOR INJECTION?SUBCUTANEOUS INJECTION 100 MG TWO TIMES A DAY, D1, D3, D5,...
     Route: 058
     Dates: start: 20240330, end: 20240408

REACTIONS (2)
  - Acute myeloid leukaemia [Unknown]
  - Myelosuppression [Not Recovered/Not Resolved]

NARRATIVE: CASE EVENT DATE: 20240101
